FAERS Safety Report 9737250 (Version 1)
Quarter: 2013Q4

REPORT INFORMATION
  Report Type: Spontaneous
  Country: FR (occurrence: FR)
  Receive Date: 20131206
  Receipt Date: 20131206
  Transmission Date: 20140711
  Serious: Yes (Other)
  Sender: FDA-Public Use
  Company Number: FR-BRISTOL-MYERS SQUIBB COMPANY-19878420

PATIENT
  Age: 65 Year
  Sex: Male

DRUGS (7)
  1. KOMBIGLYZE XR [Suspect]
     Indication: TYPE 2 DIABETES MELLITUS
     Route: 048
     Dates: end: 20131108
  2. KARDEGIC [Concomitant]
  3. LANSOPRAZOLE [Concomitant]
  4. PRAVASTATINE [Concomitant]
  5. RAMIPRIL [Concomitant]
  6. SOTALOL [Concomitant]
  7. REPAGLINIDE [Concomitant]
     Indication: TYPE 2 DIABETES MELLITUS

REACTIONS (1)
  - Pancreatitis [Unknown]
